FAERS Safety Report 8273291-7 (Version None)
Quarter: 2012Q2

REPORT INFORMATION
  Report Type: 
  Country: None (occurrence: None)
  Receive Date: 20120411
  Receipt Date: 20120405
  Transmission Date: 20120825
  Serious: Yes (Hospitalization)
  Sender: FDA-Public Use
  Company Number: JP-PFIZER INC-2012088261

PATIENT
  Age: 38 Year
  Sex: Female

DRUGS (1)
  1. ZOSYN [Suspect]
     Indication: PYELONEPHRITIS
     Dosage: UNK
     Route: 041
     Dates: start: 20120228, end: 20120304

REACTIONS (1)
  - LUNG DISORDER [None]
